FAERS Safety Report 8234075-9 (Version None)
Quarter: 2012Q1

REPORT INFORMATION
  Report Type: 
  Country: None (occurrence: None)
  Receive Date: 20120326
  Receipt Date: 20120326
  Transmission Date: 20120608
  Serious: No
  Sender: FDA-Public Use
  Company Number: None

PATIENT
  Age: 26 Year
  Sex: Female
  Weight: 49.895 kg

DRUGS (1)
  1. CYCLESSA [Suspect]
     Indication: CONTRACEPTION
     Dates: start: 20000608, end: 20100315

REACTIONS (1)
  - DEPRESSION [None]
